FAERS Safety Report 15591552 (Version 1)
Quarter: 2018Q4

REPORT INFORMATION
  Report Type: Spontaneous
  Country: SE (occurrence: SE)
  Receive Date: 20181107
  Receipt Date: 20181107
  Transmission Date: 20190205
  Serious: Yes (Hospitalization)
  Sender: FDA-Public Use
  Company Number: SE-ASTRAZENECA-2018SF42676

PATIENT
  Age: 64 Year
  Sex: Male

DRUGS (5)
  1. TENORMIN [Concomitant]
     Active Substance: ATENOLOL
     Dosage: UNK
  2. ARTHROTEC [Suspect]
     Active Substance: DICLOFENAC SODIUM\MISOPROSTOL
     Route: 048
     Dates: start: 20080515, end: 20110809
  3. BYETTA [Suspect]
     Active Substance: EXENATIDE
     Dosage: 20 MG DAILY
     Route: 058
     Dates: start: 20081031
  4. METFORMIN [Concomitant]
     Active Substance: METFORMIN HYDROCHLORIDE
     Dosage: UNK
  5. FELODIPIN ACTAVIS [Concomitant]
     Dosage: UNK

REACTIONS (1)
  - Cardiac failure [Unknown]

NARRATIVE: CASE EVENT DATE: 20110808
